FAERS Safety Report 19901462 (Version 1)
Quarter: 2021Q3

REPORT INFORMATION
  Report Type: Spontaneous
  Country: ES (occurrence: ES)
  Receive Date: 20210930
  Receipt Date: 20210930
  Transmission Date: 20211014
  Serious: Yes (Hospitalization)
  Sender: FDA-Public Use
  Company Number: ES-ACCORD-240062

PATIENT
  Age: 87 Year
  Sex: Male

DRUGS (2)
  1. ATORVASTATIN/ATORVASTATIN CALCIUM [Suspect]
     Active Substance: ATORVASTATIN CALCIUM
     Indication: DYSLIPIDAEMIA
     Dosage: 0?0?1
     Route: 048
     Dates: start: 20190305, end: 20210824
  2. COLCHIMAX [COLCHICINE,DICYCLOVERINE HYDROCHLORIDE] [Suspect]
     Active Substance: COLCHICINE\DICYCLOMINE HYDROCHLORIDE
     Indication: GOUT
     Dosage: 2 TABLETS PER DAY, 0.5/5 MG TABLETS, 60 TABLETS
     Route: 048
     Dates: start: 20210817, end: 20210824

REACTIONS (3)
  - Blood creatine phosphokinase increased [Recovered/Resolved]
  - Dermatitis [Recovering/Resolving]
  - Hypertransaminasaemia [Recovered/Resolved]

NARRATIVE: CASE EVENT DATE: 20210817
